FAERS Safety Report 19495762 (Version 1)
Quarter: 2021Q3

REPORT INFORMATION
  Report Type: Spontaneous
  Country: US (occurrence: US)
  Receive Date: 20210702
  Receipt Date: 20210702
  Transmission Date: 20211014
  Serious: No
  Sender: FDA-Public Use
  Company Number: None

PATIENT
  Age: 68 Year
  Sex: Male
  Weight: 124.2 kg

DRUGS (2)
  1. PREDNISONE 5 MG [Concomitant]
     Active Substance: PREDNISONE
     Dates: start: 20210525
  2. ABIRATERONE. [Suspect]
     Active Substance: ABIRATERONE ACETATE
     Indication: PROSTATE CANCER
     Route: 048
     Dates: start: 20210525

REACTIONS (2)
  - Urine output increased [None]
  - Disease progression [None]

NARRATIVE: CASE EVENT DATE: 20210702
